FAERS Safety Report 16898468 (Version 1)
Quarter: 2019Q4

REPORT INFORMATION
  Report Type: Spontaneous
  Country: CA (occurrence: CA)
  Receive Date: 20191009
  Receipt Date: 20191009
  Transmission Date: 20200122
  Serious: Yes (Other)
  Sender: FDA-Public Use
  Company Number: CA-PFIZER INC-2019436239

PATIENT
  Age: 76 Year
  Sex: Female

DRUGS (9)
  1. LIPITOR [Suspect]
     Active Substance: ATORVASTATIN CALCIUM
     Dosage: 80 MG, DAILY
  2. METOPROLOL. [Concomitant]
     Active Substance: METOPROLOL
     Dosage: 50 MG, 2X/DAY (
  3. DIAMICRON [Concomitant]
     Active Substance: GLICLAZIDE
     Dosage: 30 MG, DAILY
     Route: 048
  4. ASPIRIN [ACETYLSALICYLIC ACID] [Concomitant]
     Active Substance: ASPIRIN
     Dosage: UNK
  5. RAMIPRIL. [Concomitant]
     Active Substance: RAMIPRIL
     Dosage: 5 MG, 2X/DAY
  6. PANTOPRAZOLE [Concomitant]
     Active Substance: PANTOPRAZOLE
     Dosage: 40 MG, DAILY
  7. PREDNISONE. [Concomitant]
     Active Substance: PREDNISONE
     Dosage: 5 MG, DAILY
     Route: 048
  8. HEMA FER [Concomitant]
     Dosage: 12 MG, DAILY
  9. TIMOLOL/TRAVOPROST [Concomitant]
     Dosage: 1 DF (DROP) BOTH EYES HS (AT NIGHT)
     Route: 047

REACTIONS (10)
  - Myasthenia gravis [Unknown]
  - Infection [Unknown]
  - Osteoarthritis [Unknown]
  - Ovarian cyst [Unknown]
  - Crohn^s disease [Unknown]
  - Arteriosclerosis coronary artery [Unknown]
  - Patent ductus arteriosus [Unknown]
  - Neuropathy peripheral [Unknown]
  - Myocardial ischaemia [Unknown]
  - Anaemia [Unknown]
